FAERS Safety Report 18632791 (Version 3)
Quarter: 2021Q2

REPORT INFORMATION
  Report Type: Report from Study
  Country: KR (occurrence: KR)
  Receive Date: 20201218
  Receipt Date: 20210422
  Transmission Date: 20210717
  Serious: Yes (Hospitalization)
  Sender: FDA-Public Use
  Company Number: KR-ROCHE-2732751

PATIENT
  Age: 47 Year
  Sex: Female
  Weight: 49.1 kg

DRUGS (24)
  1. 5?FLUOROURACIL [Suspect]
     Active Substance: FLUOROURACIL
     Dosage: DATE OF LAST DOSE PRIOR TO ADVERSE EVENT: 29/MAR/2021,15/MAR/2021
     Route: 042
     Dates: start: 20210315
  2. TYLENOL [Concomitant]
     Active Substance: ACETAMINOPHEN
     Dates: start: 20201210, end: 20201212
  3. TAZOPERAN [Concomitant]
     Dates: start: 20201214, end: 20201215
  4. 5?FLUOROURACIL [Suspect]
     Active Substance: FLUOROURACIL
     Dosage: DATE OF LAST DOSE PRIOR TO ADVERSE EVENT: 31/MAR/2021, 17/MAR/2021
     Route: 042
     Dates: start: 20210315
  5. DEXAMETHASONE. [Concomitant]
     Active Substance: DEXAMETHASONE
     Dates: start: 20201228
  6. LEVOFLOX [Concomitant]
     Active Substance: LEVOFLOXACIN
     Dosage: 4 DROPS
     Dates: start: 20210325, end: 20210329
  7. OXALIPLATIN. [Suspect]
     Active Substance: OXALIPLATIN
     Indication: COLORECTAL CANCER METASTATIC
     Dosage: DATE OF LAST DOSE PRIOR TO ADVERSE EVENT: 03/MAR/2021
     Route: 042
     Dates: start: 20201228
  8. OXALIPLATIN. [Suspect]
     Active Substance: OXALIPLATIN
     Dosage: DATE OF LAST DOSE PRIOR TO ADVERSE EVENT: 12/APR/2021, 15/MAR/2021
     Route: 042
     Dates: start: 20210315
  9. 5?FLUOROURACIL [Suspect]
     Active Substance: FLUOROURACIL
     Indication: COLORECTAL CANCER METASTATIC
     Dosage: DATE OF LAST DOSE PRIOR TO ADVERSE EVENT: 03/MAR/2021
     Route: 042
     Dates: start: 20201228
  10. MACPERAN [Concomitant]
     Active Substance: METOCLOPRAMIDE HYDROCHLORIDE
     Dates: start: 20210111
  11. ALOXI [Concomitant]
     Active Substance: PALONOSETRON HYDROCHLORIDE
     Dates: start: 20201228
  12. OLCEFA [Concomitant]
     Dates: start: 20210325, end: 20210329
  13. BEVACIZUMAB. [Suspect]
     Active Substance: BEVACIZUMAB
     Indication: COLORECTAL CANCER METASTATIC
     Dosage: DATE OF LAST DOSE PRIOR TO ADVERSE EVENT: 12/APR/2020, 15/MAR/2021
     Route: 042
     Dates: start: 20201228
  14. 5?FLUOROURACIL [Suspect]
     Active Substance: FLUOROURACIL
     Dosage: DATE OF LAST DOSE PRIOR TO ADVERSE EVENT: 05/MAR/2021
     Route: 042
     Dates: start: 20201228
  15. ATEZOLIZUMAB. [Suspect]
     Active Substance: ATEZOLIZUMAB
     Dosage: DATE OF LAST DOSE PRIOR TO ADVERSE EVENT: 12/APR/2021, 29/MAR/2021
     Route: 041
     Dates: start: 20210215
  16. ATEZOLIZUMAB. [Suspect]
     Active Substance: ATEZOLIZUMAB
     Dosage: DATE OF LAST DOSE PRIOR TO ADVERSE EVENT: 25/JAN/2021
     Route: 041
     Dates: start: 20201228
  17. LEUCOVORIN. [Suspect]
     Active Substance: LEUCOVORIN
     Dosage: DATE OF LAST DOSE PRIOR TO ADVERSE EVENT: 12/APR/2021 AND 15/MAR/2021
     Route: 042
     Dates: start: 20210315
  18. SUPRAX CAPSULES [Concomitant]
     Dates: start: 20201214, end: 20201214
  19. LEUCOVORIN. [Suspect]
     Active Substance: LEUCOVORIN
     Indication: COLORECTAL CANCER METASTATIC
     Dosage: DATE OF LAST DOSE PRIOR TO ADVERSE EVENT: 03/MAR/2021
     Route: 042
     Dates: start: 20201228
  20. TYLENOL [Concomitant]
     Active Substance: ACETAMINOPHEN
     Dates: start: 20201203, end: 20201204
  21. NAXEN?F [Concomitant]
     Dates: start: 20201214, end: 20201214
  22. ATEZOLIZUMAB. [Suspect]
     Active Substance: ATEZOLIZUMAB
     Indication: COLORECTAL CANCER METASTATIC
     Dosage: DATE OF LAST DOSE PRIOR TO ADVERSE EVENT: 02/DEC/2020
     Route: 041
     Dates: start: 20201202
  23. URSA [Concomitant]
     Active Substance: URSODIOL
     Dates: start: 20210329
  24. LOCFENAL [Concomitant]
     Dates: start: 20210325, end: 20210329

REACTIONS (3)
  - Hypotension [Recovered/Resolved]
  - Infusion related reaction [Recovered/Resolved]
  - Pyrexia [Recovered/Resolved]

NARRATIVE: CASE EVENT DATE: 20201212
